FAERS Safety Report 11765199 (Version 1)
Quarter: 2015Q4

REPORT INFORMATION
  Report Type: Spontaneous
  Country: US (occurrence: US)
  Receive Date: 20151120
  Receipt Date: 20151120
  Transmission Date: 20160304
  Serious: No
  Sender: FDA-Public Use
  Company Number: US-ELI_LILLY_AND_COMPANY-US201401001295

PATIENT
  Sex: Female

DRUGS (2)
  1. FORTEO [Suspect]
     Active Substance: TERIPARATIDE
     Indication: OSTEOPOROSIS
     Dosage: UNK, QD
     Route: 065
     Dates: start: 20130701
  2. VITAMINS                           /90003601/ [Concomitant]
     Active Substance: VITAMINS

REACTIONS (3)
  - Arthritis [Unknown]
  - Arthralgia [Unknown]
  - Injection site erythema [Unknown]
